FAERS Safety Report 9960313 (Version 3)
Quarter: 2014Q2

REPORT INFORMATION
  Report Type: Spontaneous
  Country: HU (occurrence: HU)
  Receive Date: 20140305
  Receipt Date: 20140616
  Transmission Date: 20141212
  Serious: Yes (Death, Hospitalization, Other)
  Sender: FDA-Public Use
  Company Number: HU-JNJFOC-20140217796

PATIENT
  Age: 82 Year
  Sex: Female

DRUGS (2)
  1. XARELTO [Suspect]
     Indication: EMBOLISM VENOUS
     Route: 048
     Dates: start: 201401, end: 201402
  2. XARELTO [Suspect]
     Indication: DEEP VEIN THROMBOSIS
     Route: 048
     Dates: start: 201401, end: 201402

REACTIONS (3)
  - Pneumonia [Fatal]
  - Thrombosis [Not Recovered/Not Resolved]
  - Suicide attempt [Unknown]
